FAERS Safety Report 4919664-9 (Version None)
Quarter: 2006Q1

REPORT INFORMATION
  Report Type: 
  Country: None (occurrence: None)
  Receive Date: 20060216
  Receipt Date: 20060215
  Transmission Date: 20060701
  Serious: Yes (Hospitalization)
  Sender: FDA-Public Use
  Company Number: HQWYE518226JAN06

PATIENT
  Age: 45 Year
  Sex: Male

DRUGS (1)
  1. EFFEXOR [Suspect]
     Indication: DEPRESSION
     Dates: start: 20020101

REACTIONS (3)
  - PAIN [None]
  - SPLEEN CONGESTION [None]
  - SPLENIC HAEMATOMA [None]
